FAERS Safety Report 16043036 (Version 1)
Quarter: 2019Q1

REPORT INFORMATION
  Report Type: Spontaneous
  Country: GB (occurrence: GB)
  Receive Date: 20190306
  Receipt Date: 20190306
  Transmission Date: 20190418
  Serious: Yes (Hospitalization)
  Sender: FDA-Public Use
  Company Number: GB-VERTEX PHARMACEUTICALS-2019-001785

PATIENT
  Sex: Female

DRUGS (7)
  1. KALYDECO [Suspect]
     Active Substance: IVACAFTOR
     Indication: CYSTIC FIBROSIS
     Dosage: 150 MG, BID
     Route: 048
     Dates: start: 20130513
  2. PROMIXIN                           /00013206/ [Concomitant]
     Active Substance: COLISTIMETHATE SODIUM
  3. PRISTINE                           /00532501/ [Concomitant]
  4. VITAMIN E                          /00110501/ [Concomitant]
     Active Substance: TOCOPHEROL
  5. VITAMIN A                          /00056001/ [Concomitant]
     Active Substance: RETINOL
  6. VITAMIN K [Concomitant]
     Active Substance: PHYTONADIONE
  7. VITAMIN D                          /00107901/ [Concomitant]
     Active Substance: ERGOCALCIFEROL

REACTIONS (1)
  - Surgery [Recovering/Resolving]
